FAERS Safety Report 6068895-6 (Version None)
Quarter: 2009Q1

REPORT INFORMATION
  Report Type: 
  Country: None (occurrence: None)
  Receive Date: 20090206
  Receipt Date: 20090127
  Transmission Date: 20090719
  Serious: Yes (Other)
  Sender: FDA-Public Use
  Company Number: US-ELI_LILLY_AND_COMPANY-US200812005601

PATIENT
  Sex: Female
  Weight: 163 kg

DRUGS (7)
  1. BYETTA [Suspect]
     Indication: TYPE 2 DIABETES MELLITUS
     Dosage: 5 UG, 2/D
     Dates: start: 20051201, end: 20060201
  2. BYETTA [Suspect]
     Dates: start: 20060202, end: 20081201
  3. CRESTOR [Concomitant]
     Indication: BLOOD CHOLESTEROL INCREASED
     Dosage: UNK, WEEKLY (1/W)
  4. NEXIUM [Concomitant]
     Indication: GASTROOESOPHAGEAL REFLUX DISEASE
  5. ALLEGRA [Concomitant]
     Indication: MULTIPLE ALLERGIES
  6. NORVASC [Concomitant]
     Indication: HYPERTENSION
  7. METFORMIN HCL [Concomitant]
     Indication: TYPE 2 DIABETES MELLITUS
     Dosage: 1000 MG, 2/D
     Dates: start: 20051201

REACTIONS (4)
  - GASTROINTESTINAL DISORDER [None]
  - PANCREATITIS [None]
  - PANCREATITIS CHRONIC [None]
  - WEIGHT DECREASED [None]
